FAERS Safety Report 4881073-9 (Version None)
Quarter: 2005Q4

REPORT INFORMATION
  Report Type: 
  Country: None (occurrence: None)
  Receive Date: 20051223
  Receipt Date: 20050919
  Transmission Date: 20060501
  Serious: No
  Sender: FDA-Public Use
  Company Number: 05P-163-0311259-00

PATIENT
  Age: 49 Year
  Sex: Female
  Weight: 44.9061 kg

DRUGS (3)
  1. HUMIRA [Suspect]
     Indication: RHEUMATOID ARTHRITIS
     Dosage: 40 MG, 1 IN 2 WK, SUBCUTANEOUS
     Route: 058
     Dates: start: 20030101, end: 20050912
  2. PREDNISONE [Concomitant]
  3. CHOLESTEROL [Concomitant]

REACTIONS (5)
  - CHEST DISCOMFORT [None]
  - CHEST PAIN [None]
  - FATIGUE [None]
  - HYPERVENTILATION [None]
  - SYSTEMIC LUPUS ERYTHEMATOSUS [None]
